FAERS Safety Report 8362130-1 (Version None)
Quarter: 2012Q2

REPORT INFORMATION
  Report Type: 
  Country: None (occurrence: None)
  Receive Date: 20120515
  Receipt Date: 20120508
  Transmission Date: 20120825
  Serious: Yes (Congenital Anomaly)
  Sender: FDA-Public Use
  Company Number: PHHY2012DE039489

PATIENT

DRUGS (5)
  1. TACROLIMUS [Suspect]
     Route: 064
  2. PREDNISONE [Suspect]
     Route: 064
  3. MYFORTIC [Suspect]
     Dosage: (MATERNAL DOSE: 0.5 G/DAY)
     Route: 064
  4. CELLCEPT [Suspect]
     Dosage: (MATERNAL DOSE: 0.5 G/DAY)
     Route: 064
  5. ACEBUTOLOL [Suspect]

REACTIONS (4)
  - CONGENITAL RENAL CYST [None]
  - FOETAL EXPOSURE DURING PREGNANCY [None]
  - EXTERNAL AUDITORY CANAL ATRESIA [None]
  - MICROTIA [None]
